FAERS Safety Report 7358855-7 (Version None)
Quarter: 2011Q1

REPORT INFORMATION
  Report Type: 
  Country: None (occurrence: None)
  Receive Date: 20110317
  Receipt Date: 20110308
  Transmission Date: 20110831
  Serious: Yes (Other)
  Sender: FDA-Public Use
  Company Number: B0705138A

PATIENT
  Age: 70 Year
  Sex: Male

DRUGS (2)
  1. REQUIP [Suspect]
     Indication: PARKINSON'S DISEASE
     Dosage: 10MG AT NIGHT
     Route: 065
  2. PROLOPA [Concomitant]
     Dosage: 500MG PER DAY

REACTIONS (1)
  - SLEEP ATTACKS [None]
